FAERS Safety Report 20671648 (Version 1)
Quarter: 2022Q2

REPORT INFORMATION
  Report Type: Spontaneous
  Country: SI (occurrence: SI)
  Receive Date: 20220404
  Receipt Date: 20220404
  Transmission Date: 20220721
  Serious: Yes (Hospitalization, Other)
  Sender: FDA-Public Use
  Company Number: SI-ALKEM LABORATORIES LIMITED-SI-ALKEM-2021-08544

PATIENT
  Age: 42 Year
  Sex: Female
  Weight: 70 kg

DRUGS (1)
  1. VENLAFAXINE [Suspect]
     Active Substance: VENLAFAXINE HYDROCHLORIDE
     Indication: Depression
     Dosage: 9 GRAM, ONCE
     Route: 065

REACTIONS (3)
  - Suicide attempt [Unknown]
  - Hypoglycaemia [Recovered/Resolved]
  - Overdose [Unknown]
